FAERS Safety Report 19511755 (Version 1)
Quarter: 2021Q3

REPORT INFORMATION
  Report Type: Spontaneous
  Country: CN (occurrence: CN)
  Receive Date: 20210709
  Receipt Date: 20210709
  Transmission Date: 20211014
  Serious: Yes (Other)
  Sender: FDA-Public Use
  Company Number: CN-MACLEODS PHARMACEUTICALS US LTD-MAC2021031808

PATIENT

DRUGS (7)
  1. ESZOPICLONE 3 MG [Suspect]
     Active Substance: ESZOPICLONE
     Indication: SLEEP DISORDER
     Dosage: 3 MILLIGRAM, QD
     Route: 048
  2. ENTECAVIR. [Concomitant]
     Active Substance: ENTECAVIR
     Indication: NEUROSIS
  3. TRAZODONE HYDROCHLORIDE. [Concomitant]
     Active Substance: TRAZODONE HYDROCHLORIDE
     Indication: ANXIETY
     Dosage: 150 MILLIGRAM
     Route: 048
     Dates: start: 201805
  4. TRAZODONE HYDROCHLORIDE. [Concomitant]
     Active Substance: TRAZODONE HYDROCHLORIDE
     Indication: DEPRESSION
  5. POLYENEPHOSPHATIDYL CHOLINE [Concomitant]
     Indication: LIVER INJURY
     Dosage: 15 MILLILITER, QD
     Route: 042
  6. ENTECAVIR. [Concomitant]
     Active Substance: ENTECAVIR
     Indication: HEPATITIS B
     Dosage: 0.5 MILLIGRAM
     Route: 048
  7. POLYENEPHOSPHATIDYL CHOLINE [Concomitant]
     Indication: HEPATOCELLULAR INJURY
     Dosage: 15 MILLILITER
     Route: 042

REACTIONS (2)
  - Liver injury [Recovered/Resolved]
  - Hepatocellular injury [Recovered/Resolved]
